FAERS Safety Report 5000855-6 (Version None)
Quarter: 2006Q2

REPORT INFORMATION
  Report Type: 
  Country: None (occurrence: None)
  Receive Date: 20060512
  Receipt Date: 20051019
  Transmission Date: 20061013
  Serious: Yes (Hospitalization, Disabling)
  Sender: FDA-Public Use
  Company Number: US-MERCK-0510USA08342

PATIENT
  Age: 55 Year
  Sex: Female
  Weight: 73 kg

DRUGS (12)
  1. VIOXX [Suspect]
     Indication: LYME DISEASE
     Route: 048
     Dates: start: 19990101, end: 20040901
  2. VIOXX [Suspect]
     Indication: ARTHRITIS
     Route: 048
     Dates: start: 19990101, end: 20040901
  3. ZOLOFT [Concomitant]
     Route: 065
     Dates: start: 19990101, end: 20040101
  4. POTASSIUM (UNSPECIFIED) [Concomitant]
     Route: 065
  5. [THERAPY UNSPECIFIED] [Concomitant]
     Route: 065
  6. LIPITOR [Concomitant]
     Route: 065
  7. CEFTIN [Concomitant]
     Route: 065
  8. VICODIN [Concomitant]
     Route: 065
     Dates: start: 19990101
  9. SOMA [Concomitant]
     Route: 065
     Dates: start: 19990101
  10. SINGULAIR [Concomitant]
     Route: 065
  11. MORPHINE [Concomitant]
     Route: 065
  12. NITROGLYCERIN [Concomitant]
     Indication: CHEST PAIN
     Route: 065
     Dates: start: 19750101

REACTIONS (19)
  - ABDOMINAL DISTENSION [None]
  - ARTERIOSCLEROSIS [None]
  - CAROTID ARTERY STENOSIS [None]
  - CEREBROVASCULAR ACCIDENT [None]
  - CHEST DISCOMFORT [None]
  - CHEST PAIN [None]
  - DISSOCIATIVE AMNESIA [None]
  - DYSPEPSIA [None]
  - FLATULENCE [None]
  - LYME DISEASE [None]
  - MAJOR DEPRESSION [None]
  - MYOCARDIAL ISCHAEMIA [None]
  - NEUROPATHY [None]
  - OVARIAN CYST [None]
  - PAIN [None]
  - PALPITATIONS [None]
  - PELVIC PERITONEAL ADHESIONS [None]
  - TRANSIENT ISCHAEMIC ATTACK [None]
  - UNRESPONSIVE TO VERBAL STIMULI [None]
